FAERS Safety Report 6625870-8 (Version None)
Quarter: 2010Q1

REPORT INFORMATION
  Report Type: 
  Country: None (occurrence: None)
  Receive Date: 20100310
  Receipt Date: 20100227
  Transmission Date: 20100710
  Serious: Yes (Other)
  Sender: FDA-Public Use
  Company Number: US-JNJCH-2010005216

PATIENT
  Age: 63 Year
  Sex: Male

DRUGS (2)
  1. ASPIRIN [Suspect]
     Indication: ANGINA PECTORIS
     Route: 048
  2. CLOPIDOGREL [Suspect]
     Indication: ANGINA PECTORIS
     Dosage: TEXT:UNSPECIFIED
     Route: 065

REACTIONS (1)
  - HAEMATURIA [None]
